FAERS Safety Report 9994748 (Version 1)
Quarter: 2014Q1

REPORT INFORMATION
  Report Type: Spontaneous
  Country: US (occurrence: None)
  Receive Date: 20140307
  Receipt Date: 20140307
  Transmission Date: 20141002
  Serious: Yes (Disabling)
  Sender: FDA-Public Use
  Company Number: None

PATIENT
  Age: 74 Year
  Sex: Female
  Weight: 58.97 kg

DRUGS (8)
  1. ATELVIA [Suspect]
     Indication: OSTEOARTHRITIS
     Dosage: BY MOUTH; 1XWK MORNING
     Route: 048
     Dates: start: 2013, end: 20140124
  2. BENICAR [Concomitant]
  3. SPIRIVA [Concomitant]
  4. ADVAIR DISKUS [Concomitant]
  5. ABTRANDILVER VITAMIN [Concomitant]
  6. CALCIUIM [Concomitant]
  7. VITAMIN D [Concomitant]
  8. CQ10+ FLAX SEED [Concomitant]

REACTIONS (3)
  - Arthralgia [None]
  - Pain in extremity [None]
  - Groin pain [None]
